FAERS Safety Report 10557957 (Version 1)
Quarter: 2014Q4

REPORT INFORMATION
  Report Type: Spontaneous
  Country: GB (occurrence: None)
  Receive Date: 20141029
  Receipt Date: 20141029
  Transmission Date: 20150529
  Serious: No
  Sender: FDA-Public Use
  Company Number: GB-LHC-2014091

PATIENT
  Sex: Female

DRUGS (1)
  1. COMPRESSED MEDICAL OXYGEN [Suspect]
     Active Substance: OXYGEN
     Indication: CHRONIC OBSTRUCTIVE PULMONARY DISEASE
     Route: 055
     Dates: start: 201001

REACTIONS (3)
  - Device occlusion [None]
  - Device failure [None]
  - Malaise [None]

NARRATIVE: CASE EVENT DATE: 201410
